FAERS Safety Report 8369427-X (Version None)
Quarter: 2012Q2

REPORT INFORMATION
  Report Type: 
  Country: None (occurrence: None)
  Receive Date: 20120518
  Receipt Date: 20120509
  Transmission Date: 20120825
  Serious: Yes (Life-Threatening, Other)
  Sender: FDA-Public Use
  Company Number: CN-JNJFOC-20110506096

PATIENT
  Sex: Female
  Weight: 60 kg

DRUGS (2)
  1. ULTRACET [Suspect]
     Indication: PAIN IN EXTREMITY
     Dosage: 37.5 MG OF TRAMADOL HYDROCHLORIDE AND 325 MG OF PARACETAMOL 1 PER DAY
     Route: 048
     Dates: start: 20110510, end: 20110511
  2. ULTRACET [Suspect]
     Indication: INTERVERTEBRAL DISC PROTRUSION
     Dosage: 37.5 MG OF TRAMADOL HYDROCHLORIDE AND 325 MG OF PARACETAMOL 1 PER DAY
     Route: 048
     Dates: start: 20110510, end: 20110511

REACTIONS (3)
  - UNRESPONSIVE TO STIMULI [None]
  - LETHARGY [None]
  - VOMITING [None]
